FAERS Safety Report 6998514-3 (Version None)
Quarter: 2010Q3

REPORT INFORMATION
  Report Type: 
  Country: None (occurrence: None)
  Receive Date: 20100920
  Receipt Date: 20100323
  Transmission Date: 20110219
  Serious: Yes (Other)
  Sender: FDA-Public Use
  Company Number: US-ASTRAZENECA-2007UW12061

PATIENT
  Age: 23 Year
  Sex: Male
  Weight: 93 kg

DRUGS (11)
  1. SEROQUEL [Suspect]
     Indication: SCHIZOPHRENIA
     Route: 048
     Dates: start: 20010101, end: 20050301
  2. SEROQUEL [Suspect]
     Route: 048
     Dates: start: 20011101, end: 20050301
  3. ZYPREXA [Concomitant]
     Route: 048
     Dates: start: 19990701
  4. RISPERDAL [Concomitant]
     Route: 048
     Dates: start: 19990701
  5. CLOZARIL [Concomitant]
  6. GEODON [Concomitant]
     Dates: start: 19990101, end: 20030101
  7. HALDOL [Concomitant]
     Dates: start: 19990101
  8. THORAZINE [Concomitant]
  9. AKINETON [Concomitant]
     Route: 048
     Dates: start: 20040123
  10. ATIVAN [Concomitant]
     Route: 048
     Dates: start: 19990820
  11. COGENTIN [Concomitant]
     Dosage: 2-4 MG
     Route: 048
     Dates: start: 20011130

REACTIONS (5)
  - DIABETES MELLITUS [None]
  - DIABETES MELLITUS INADEQUATE CONTROL [None]
  - GLUCOSE TOLERANCE IMPAIRED [None]
  - TYPE 1 DIABETES MELLITUS [None]
  - TYPE 2 DIABETES MELLITUS [None]
